FAERS Safety Report 24796871 (Version 1)
Quarter: 2025Q1

REPORT INFORMATION
  Report Type: Spontaneous
  Country: US (occurrence: US)
  Receive Date: 20250101
  Receipt Date: 20250101
  Transmission Date: 20250408
  Serious: Yes (Other)
  Sender: SANOFI AVENTIS
  Company Number: US-SA-2024SA384405

PATIENT
  Sex: Female

DRUGS (38)
  1. PHISOHEX [Suspect]
     Active Substance: HEXACHLOROPHENE
     Indication: Product used for unknown indication
  2. DUONEB [Concomitant]
     Active Substance: ALBUTEROL SULFATE\IPRATROPIUM BROMIDE
  3. MYCOSTATIN [Concomitant]
     Active Substance: NYSTATIN
  4. DULCOLAX (BISACODYL) [Concomitant]
     Active Substance: BISACODYL
  5. LIDOCAINE [Concomitant]
     Active Substance: LIDOCAINE
  6. CALCIUM CARBONATE\CHOLECALCIFEROL [Concomitant]
     Active Substance: CALCIUM CARBONATE\CHOLECALCIFEROL
  7. MELATONIN [Concomitant]
     Active Substance: MELATONIN
  8. SIMETHICONE (DIMETHICONE) [Concomitant]
     Active Substance: DIMETHICONE
  9. TYLENOL [Concomitant]
     Active Substance: ACETAMINOPHEN
  10. ALBUTEROL [Concomitant]
     Active Substance: ALBUTEROL
  11. PROAMATINE [Concomitant]
     Active Substance: MIDODRINE HYDROCHLORIDE
  12. OXYCODONE [Concomitant]
     Active Substance: OXYCODONE
  13. MUCOMYST [Concomitant]
     Active Substance: ACETYLCYSTEINE
  14. DESYREL [Concomitant]
     Active Substance: TRAZODONE HYDROCHLORIDE
  15. PROAMATINE [Concomitant]
     Active Substance: MIDODRINE HYDROCHLORIDE
  16. ZOFRAN [Concomitant]
     Active Substance: ONDANSETRON HYDROCHLORIDE
  17. SODIUM CHLORIDE [Concomitant]
     Active Substance: SODIUM CHLORIDE
  18. RENVELA [Concomitant]
     Active Substance: SEVELAMER CARBONATE
  19. LIDOCAINE [Concomitant]
     Active Substance: LIDOCAINE
  20. ROBITUSSIN (GUAIFENESIN) [Concomitant]
     Active Substance: GUAIFENESIN
  21. PROGRAF [Concomitant]
     Active Substance: TACROLIMUS
  22. DELTASONE [Concomitant]
     Active Substance: PREDNISONE
  23. NEURONTIN [Concomitant]
     Active Substance: GABAPENTIN
  24. PULMOZYME [Concomitant]
     Active Substance: DORNASE ALFA
  25. XOPENEX [Concomitant]
     Active Substance: LEVALBUTEROL HYDROCHLORIDE
  26. EMEND [Concomitant]
     Active Substance: APREPITANT
  27. LEXAPRO [Concomitant]
     Active Substance: ESCITALOPRAM OXALATE
  28. MYFORTIC [Concomitant]
     Active Substance: MYCOPHENOLATE SODIUM
  29. INSULIN LISPRO [Concomitant]
     Active Substance: INSULIN LISPRO
  30. COUMADIN [Concomitant]
     Active Substance: WARFARIN SODIUM
  31. KEPPRA [Concomitant]
     Active Substance: LEVETIRACETAM
  32. BACTRIM DS [Concomitant]
     Active Substance: SULFAMETHOXAZOLE\TRIMETHOPRIM
  33. VALCYTE [Concomitant]
     Active Substance: VALGANCICLOVIR HYDROCHLORIDE
  34. IMODIUM [Concomitant]
     Active Substance: LOPERAMIDE HYDROCHLORIDE
  35. ASPIRIN [Concomitant]
     Active Substance: ASPIRIN
  36. PROGRAF [Concomitant]
     Active Substance: TACROLIMUS
  37. NEPHRO-VITE [ASCORBIC ACID;BIOTIN;CYANOCOBALAMIN;FOLIC ACID;NICOTINAMI [Concomitant]
  38. SODIUM CITRATE [Concomitant]
     Active Substance: SODIUM CITRATE

REACTIONS (1)
  - Erythema multiforme [Unknown]
